FAERS Safety Report 15369691 (Version 1)
Quarter: 2018Q3

REPORT INFORMATION
  Report Type: Spontaneous
  Country: US (occurrence: US)
  Receive Date: 20180911
  Receipt Date: 20180911
  Transmission Date: 20181010
  Serious: Yes (Disabling, Other)
  Sender: FDA-Public Use
  Company Number: US-BIOCOMPATIBLES UK LTD-2018BTG01775

PATIENT
  Age: 23 Year
  Sex: Male

DRUGS (4)
  1. CROFAB [Suspect]
     Active Substance: CROTALIDAE POLYVALENT IMMUNE FAB (OVINE)
     Dosage: 12 VIALS, DRIP
  2. LEVOFLAXIN [Concomitant]
     Active Substance: LEVOFLOXACIN
     Indication: PROPHYLAXIS
     Dosage: UNK
  3. CROFAB [Suspect]
     Active Substance: CROTALIDAE POLYVALENT IMMUNE FAB (OVINE)
     Indication: SNAKE BITE
     Dosage: 4 VIALS, UNK
     Route: 042
  4. CROFAB [Suspect]
     Active Substance: CROTALIDAE POLYVALENT IMMUNE FAB (OVINE)
     Dosage: 8 VIALS, DRIP

REACTIONS (13)
  - Ocular vascular disorder [Unknown]
  - Product availability issue [Unknown]
  - Blindness [Unknown]
  - Pupillary disorder [Unknown]
  - Conjunctival haemorrhage [Unknown]
  - Vitreous disorder [Unknown]
  - Vitreous haemorrhage [None]
  - Choroidal rupture [Unknown]
  - Inappropriate schedule of drug administration [Unknown]
  - Eye swelling [Unknown]
  - Exophthalmos [Unknown]
  - Thrombocytopenia [Unknown]
  - Leukocytosis [Unknown]
